FAERS Safety Report 4513043-4 (Version None)
Quarter: 2004Q4

REPORT INFORMATION
  Report Type: 
  Country: None (occurrence: None)
  Receive Date: 20041124
  Receipt Date: 20041115
  Transmission Date: 20050328
  Serious: Yes (Hospitalization)
  Sender: FDA-Public Use
  Company Number: 2004UW23506

PATIENT
  Age: 35 Year
  Sex: Male
  Weight: 79.37 kg

DRUGS (4)
  1. CRESTOR [Suspect]
     Dosage: 10 MG PO
     Route: 048
  2. ZYRTEC [Concomitant]
  3. FLONASE [Concomitant]
  4. PROPECIA [Concomitant]

REACTIONS (3)
  - GASTROOESOPHAGEAL REFLUX DISEASE [None]
  - RHABDOMYOLYSIS [None]
  - VIRAL INFECTION [None]
